FAERS Safety Report 4816506-7 (Version None)
Quarter: 2005Q4

REPORT INFORMATION
  Report Type: 
  Country: None (occurrence: None)
  Receive Date: 20051101
  Receipt Date: 20051025
  Transmission Date: 20060501
  Serious: Yes (Death, Hospitalization)
  Sender: FDA-Public Use
  Company Number: PHBS2005CO15730

PATIENT
  Age: 79 Year
  Sex: Male

DRUGS (4)
  1. EUGLUCON [Concomitant]
  2. GLUCOPHAGE [Concomitant]
  3. TEGRETOL [Suspect]
     Route: 048
  4. HUMULIN [Concomitant]
     Indication: DIABETES MELLITUS

REACTIONS (3)
  - DEATH [None]
  - LEG AMPUTATION [None]
  - SKIN ULCER [None]
